FAERS Safety Report 15065980 (Version 1)
Quarter: 2018Q2

REPORT INFORMATION
  Report Type: Spontaneous
  Country: US (occurrence: US)
  Receive Date: 20180605
  Receipt Date: 20180605
  Transmission Date: 20180711
  Serious: No
  Sender: FDA-Public Use
  Company Number: None

PATIENT
  Age: 53 Year
  Sex: Male

DRUGS (1)
  1. MAVYRET [Suspect]
     Active Substance: GLECAPREVIR\PIBRENTASVIR
     Dates: start: 20180522, end: 20180605

REACTIONS (4)
  - Nausea [None]
  - Influenza like illness [None]
  - Infection [None]
  - Fatigue [None]

NARRATIVE: CASE EVENT DATE: 20180522
